FAERS Safety Report 26062304 (Version 2)
Quarter: 2025Q4

REPORT INFORMATION
  Report Type: Spontaneous
  Country: US (occurrence: US)
  Receive Date: 20251119
  Receipt Date: 20251202
  Transmission Date: 20260117
  Serious: No
  Sender: JOHNSON AND JOHNSON
  Company Number: US-JNJFOC-20251149967

PATIENT
  Sex: Male

DRUGS (1)
  1. TREMFYA [Suspect]
     Active Substance: GUSELKUMAB
     Indication: Inflammatory bowel disease
     Route: 058

REACTIONS (1)
  - Herpes zoster [Recovering/Resolving]

NARRATIVE: CASE EVENT DATE: 20251027
